FAERS Safety Report 8611160-0 (Version None)
Quarter: 2012Q3

REPORT INFORMATION
  Report Type: 
  Country: None (occurrence: None)
  Receive Date: 20120423
  Receipt Date: 20090914
  Transmission Date: 20120928
  Serious: Yes (Other)
  Sender: FDA-Public Use
  Company Number: PHEH2008US11617

PATIENT
  Sex: Female
  Weight: 63 kg

DRUGS (6)
  1. CYCLOSPORINE [Suspect]
     Indication: APLASTIC ANAEMIA
     Dosage: 300 MG, BID, ORAL
     Route: 048
  2. VALCYTE [Concomitant]
  3. AMBIEN [Concomitant]
  4. EXJADE [Suspect]
     Indication: IRON OVERLOAD
     Dosage: 1250 MG, QD, ORAL
     Route: 048
     Dates: start: 20071022, end: 20080102
  5. EXJADE [Suspect]
     Indication: CONGENITAL APLASTIC ANAEMIA
     Dosage: 1250 MG, QD, ORAL
     Route: 048
     Dates: start: 20071022, end: 20080102
  6. ATOVAQUONE [Concomitant]

REACTIONS (3)
  - BLOOD UREA INCREASED [None]
  - BLOOD CREATININE INCREASED [None]
  - MYOGLOBIN BLOOD PRESENT [None]
